FAERS Safety Report 5329968-6 (Version None)
Quarter: 2007Q2

REPORT INFORMATION
  Report Type: 
  Country: None (occurrence: None)
  Receive Date: 20070521
  Receipt Date: 20070515
  Transmission Date: 20071010
  Serious: Yes (Death)
  Sender: FDA-Public Use
  Company Number: US-GENENTECH-228095

PATIENT
  Sex: Female

DRUGS (6)
  1. RANIBIZUMAB [Suspect]
     Indication: MACULAR DEGENERATION
     Route: 031
     Dates: start: 20060131, end: 20060405
  2. VITEYES [Concomitant]
     Indication: MEDICAL DIET
     Dosage: IN OD AND OS
     Dates: start: 20050912
  3. VYTORIN [Concomitant]
     Indication: HYPERCHOLESTEROLAEMIA
     Dates: start: 20050101
  4. METOPROLOL SUCCINATE [Concomitant]
     Indication: HYPERTENSION
     Dates: start: 19950101
  5. ISOSORBIDE [Concomitant]
     Indication: HYPERTENSION
     Dates: start: 19950101
  6. ZITHROMAX [Concomitant]
     Indication: SINUSITIS
     Dates: start: 20060508

REACTIONS (1)
  - DEATH [None]
